FAERS Safety Report 5106907-4 (Version None)
Quarter: 2006Q3

REPORT INFORMATION
  Report Type: 
  Country: None (occurrence: None)
  Receive Date: 20060913
  Receipt Date: 20060830
  Transmission Date: 20061208
  Serious: Yes (Other)
  Sender: FDA-Public Use
  Company Number: 2006-BP-10080RO

PATIENT
  Sex: Female

DRUGS (3)
  1. DIGOXIN [Suspect]
     Indication: CARDIAC FAILURE
     Dosage: SEE IMAGE
  2. DIGOXIN [Suspect]
     Indication: FOETAL DISORDER
     Dosage: SEE IMAGE
  3. DIGOXIN [Suspect]
     Indication: PROPHYLAXIS
     Dosage: SEE IMAGE

REACTIONS (9)
  - APGAR SCORE LOW [None]
  - DRUG EXPOSURE DURING PREGNANCY [None]
  - FOETAL DISORDER [None]
  - HYDROPS FOETALIS [None]
  - NEONATAL DISORDER [None]
  - NEONATAL RESPIRATORY DISTRESS SYNDROME [None]
  - NEOPLASM PROGRESSION [None]
  - RHABDOMYOMA [None]
  - VENTRICULAR TACHYCARDIA [None]
